FAERS Safety Report 5961962-4 (Version None)
Quarter: 2008Q4

REPORT INFORMATION
  Report Type: 
  Country: None (occurrence: None)
  Receive Date: 20081119
  Receipt Date: 20081001
  Transmission Date: 20090506
  Serious: No
  Sender: FDA-Public Use
  Company Number: WAES 0810USA00205

PATIENT
  Age: 65 Year
  Sex: Female

DRUGS (4)
  1. JANUVIA [Suspect]
     Indication: DIABETES MELLITUS
     Dosage: 100 MG/DAILY/PO
     Route: 048
     Dates: start: 20080924
  2. DIOVAN [Concomitant]
  3. ZOCOR [Concomitant]
  4. THYROID TAB [Concomitant]

REACTIONS (2)
  - OROPHARYNGEAL PAIN [None]
  - RHINORRHOEA [None]
